FAERS Safety Report 14782109 (Version 4)
Quarter: 2019Q1

REPORT INFORMATION
  Report Type: Spontaneous
  Country: FR (occurrence: FR)
  Receive Date: 20180420
  Receipt Date: 20190328
  Transmission Date: 20190417
  Serious: Yes (Death)
  Sender: FDA-Public Use
  Company Number: FR-TEVA-2018-FR-882559

PATIENT
  Age: 29 Year
  Sex: Female
  Weight: 66 kg

DRUGS (5)
  1. RISPERIDONE. [Suspect]
     Active Substance: RISPERIDONE
     Indication: PSYCHOTIC DISORDER
     Dosage: 6 MILLIGRAM DAILY;
     Route: 048
     Dates: start: 20171117
  2. TERCIAN [Suspect]
     Active Substance: CYAMEMAZINE
     Route: 048
     Dates: start: 20171021
  3. THERALENE [Suspect]
     Active Substance: TRIMEPRAZINE
     Indication: PSYCHOTIC DISORDER
     Dosage: 5 MILLIGRAM DAILY; TABLET COATED SCORED
     Route: 048
     Dates: start: 20171123
  4. TERCIAN [Suspect]
     Active Substance: CYAMEMAZINE
     Indication: PSYCHOTIC DISORDER
     Route: 048
     Dates: start: 20171021
  5. ZOPICLONE [Suspect]
     Active Substance: ZOPICLONE
     Indication: PSYCHOTIC DISORDER
     Route: 048
     Dates: start: 20171021

REACTIONS (3)
  - Malaise [Fatal]
  - Cardio-respiratory arrest [Fatal]
  - Tachycardia [Fatal]

NARRATIVE: CASE EVENT DATE: 20171124
